FAERS Safety Report 6502607-4 (Version None)
Quarter: 2009Q4

REPORT INFORMATION
  Report Type: 
  Country: None (occurrence: None)
  Receive Date: 20091217
  Receipt Date: 20091214
  Transmission Date: 20100525
  Serious: Yes (Hospitalization)
  Sender: FDA-Public Use
  Company Number: ES-PERRIGO-09ES005700

PATIENT
  Age: 54 Year
  Sex: Female

DRUGS (2)
  1. IBUPROFEN 200MG 628 [Suspect]
     Indication: PAIN
  2. ACETAMINOPHEN 650MG ER 544 [Suspect]
     Indication: PAIN

REACTIONS (1)
  - TUBULOINTERSTITIAL NEPHRITIS [None]
